FAERS Safety Report 16825060 (Version 1)
Quarter: 2019Q3

REPORT INFORMATION
  Report Type: Spontaneous
  Country: US (occurrence: US)
  Receive Date: 20190919
  Receipt Date: 20190919
  Transmission Date: 20191005
  Serious: No
  Sender: FDA-Public Use
  Company Number: US-LUPIN PHARMACEUTICALS INC.-2018-07716

PATIENT
  Age: 33 Year
  Sex: Female

DRUGS (1)
  1. MISOPROSTOL. [Suspect]
     Active Substance: MISOPROSTOL
     Indication: CERVICAL DILATATION
     Dosage: 400 MCG, UNK
     Route: 067

REACTIONS (2)
  - Off label use [Unknown]
  - Incorrect dose administered [Unknown]
